FAERS Safety Report 9296584 (Version 1)
Quarter: 2013Q2

REPORT INFORMATION
  Report Type: Spontaneous
  Country: FR (occurrence: FR)
  Receive Date: 20130517
  Receipt Date: 20130517
  Transmission Date: 20140414
  Serious: Yes (Other)
  Sender: FDA-Public Use
  Company Number: FR-ASTRAZENECA-2013SE23822

PATIENT
  Age: 22924 Day
  Sex: Female
  Weight: 60 kg

DRUGS (3)
  1. SYMBICORT TBH [Suspect]
     Indication: DYSPNOEA
     Dosage: 160/4.5 UG PER DOSE ONE INHALATION IN THE MORNING AND ONE INHALATION IN THE EVENING
     Route: 055
     Dates: start: 2009, end: 20120930
  2. SYMBICORT TBH [Suspect]
     Indication: DYSPNOEA
     Dosage: 160/4.5 UG PER DOSE ONE INHALATION IN THE MORNING AND ONE INHALATION IN THE EVENING
     Route: 055
     Dates: start: 20121001, end: 20130105
  3. SYMBICORT TBH [Suspect]
     Indication: DYSPNOEA
     Dosage: 160/4.5 UG PER DOSE ONE INHALATION IN THE MORNING AND ONE INHALATION IN THE EVENING
     Route: 055
     Dates: start: 20130106

REACTIONS (3)
  - Asthma [Unknown]
  - Drug ineffective for unapproved indication [Recovered/Resolved]
  - Dyspnoea [Recovered/Resolved]
